FAERS Safety Report 25597671 (Version 1)
Quarter: 2025Q3

REPORT INFORMATION
  Report Type: Spontaneous
  Country: US (occurrence: None)
  Receive Date: 20250723
  Receipt Date: 20250723
  Transmission Date: 20251021
  Serious: Yes (Hospitalization, Disabling)
  Sender: FDA-CTU
  Company Number: None

PATIENT
  Age: 49 Year
  Sex: Female
  Weight: 60.75 kg

DRUGS (4)
  1. COMPAZINE [Suspect]
     Active Substance: PROCHLORPERAZINE MALEATE
     Indication: Nausea
  2. LOREEV XR [Concomitant]
     Active Substance: LORAZEPAM
  3. REMERON [Concomitant]
     Active Substance: MIRTAZAPINE
  4. ELIQUIS [Concomitant]
     Active Substance: APIXABAN

REACTIONS (4)
  - Feeling abnormal [None]
  - Tachyphrenia [None]
  - Fear [None]
  - Generalised anxiety disorder [None]

NARRATIVE: CASE EVENT DATE: 20240414
